FAERS Safety Report 20219459 (Version 1)
Quarter: 2021Q4

REPORT INFORMATION
  Report Type: Spontaneous
  Country: US (occurrence: None)
  Receive Date: 20211222
  Receipt Date: 20211222
  Transmission Date: 20220303
  Serious: Yes (Other)
  Sender: FDA-Public Use
  Company Number: 2021A882748

PATIENT

DRUGS (1)
  1. SEROQUEL [Suspect]
     Active Substance: QUETIAPINE FUMARATE
     Dosage: UNKNOWN
     Route: 048

REACTIONS (5)
  - Intellectual disability [Unknown]
  - Abdominal discomfort [Unknown]
  - Night sweats [Unknown]
  - Stress [Unknown]
  - Vomiting [Unknown]
